FAERS Safety Report 10846532 (Version 9)
Quarter: 2015Q3

REPORT INFORMATION
  Report Type: Report from Study
  Country: US (occurrence: US)
  Receive Date: 20150220
  Receipt Date: 20150803
  Transmission Date: 20151125
  Serious: Yes (Hospitalization, Other)
  Sender: FDA-Public Use
  Company Number: US-ALEXION-A201500556

PATIENT

DRUGS (1)
  1. SOLIRIS [Suspect]
     Active Substance: ECULIZUMAB
     Indication: PAROXYSMAL NOCTURNAL HAEMOGLOBINURIA
     Dosage: UNK
     Route: 042

REACTIONS (6)
  - Haemoglobin decreased [Unknown]
  - Computerised tomogram abnormal [Unknown]
  - Headache [Unknown]
  - Bone marrow disorder [Recovering/Resolving]
  - Aplastic anaemia [Not Recovered/Not Resolved]
  - Haematocrit abnormal [Unknown]

NARRATIVE: CASE EVENT DATE: 20150213
